FAERS Safety Report 6098333-9 (Version None)
Quarter: 2009Q1

REPORT INFORMATION
  Report Type: 
  Country: None (occurrence: None)
  Receive Date: 20090302
  Receipt Date: 20090217
  Transmission Date: 20090719
  Serious: Yes (Hospitalization, Other)
  Sender: FDA-Public Use
  Company Number: US-PFIZER INC-2009174156

PATIENT
  Sex: Female

DRUGS (9)
  1. CHANTIX [Suspect]
     Indication: SMOKING CESSATION THERAPY
     Dosage: 1 MG, 2X/DAY
     Dates: start: 20080401, end: 20080401
  2. GEODON [Concomitant]
     Dosage: UNK
  3. MONTELUKAST SODIUM [Concomitant]
     Dosage: UNK
  4. ADVAIR HFA [Concomitant]
     Dosage: UNK
  5. DRUG, UNSPECIFIED [Concomitant]
     Dosage: UNK
  6. METFORMIN [Concomitant]
     Dosage: UNK
  7. CYMBALTA [Concomitant]
     Dosage: UNK
  8. DARVOCET [Concomitant]
     Indication: INTERVERTEBRAL DISC PROTRUSION
     Dosage: UNK
  9. ALLERGY MEDICATION [Concomitant]
     Dosage: UNK

REACTIONS (2)
  - DEPRESSION [None]
  - SUICIDAL IDEATION [None]
